APPROVED DRUG PRODUCT: LORBRENA
Active Ingredient: LORLATINIB
Strength: 25MG
Dosage Form/Route: TABLET;ORAL
Application: N210868 | Product #001
Applicant: PFIZER INC
Approved: Nov 2, 2018 | RLD: Yes | RS: No | Type: RX

PATENTS:
Patent 10420749 | Expires: Jul 27, 2036
Patent 10420749 | Expires: Jul 27, 2036
Patent 11020376 | Expires: Jul 27, 2036
Patent 11299500 | Expires: Oct 4, 2038
Patent 8680111 | Expires: Mar 5, 2033

EXCLUSIVITY:
Code: ODE-349 | Date: Mar 3, 2028